FAERS Safety Report 8440632-7 (Version None)
Quarter: 2012Q2

REPORT INFORMATION
  Report Type: 
  Country: None (occurrence: None)
  Receive Date: 20120615
  Receipt Date: 20120611
  Transmission Date: 20120825
  Serious: Yes (Other)
  Sender: FDA-Public Use
  Company Number: US-MERCK-1111USA02478

PATIENT
  Age: 61 Year
  Sex: Female
  Weight: 58 kg

DRUGS (1)
  1. FOSAMAX [Suspect]
     Indication: OSTEOPOROSIS PROPHYLAXIS
     Route: 048
     Dates: start: 20011101, end: 20080101

REACTIONS (38)
  - OSTEOMYELITIS [None]
  - ABDOMINAL PAIN LOWER [None]
  - TEMPOROMANDIBULAR JOINT SYNDROME [None]
  - OSTEOPENIA [None]
  - MICROALBUMINURIA [None]
  - CYSTITIS [None]
  - BONE LOSS [None]
  - CHEST PAIN [None]
  - CORONARY ARTERY DISEASE [None]
  - DENTAL CARIES [None]
  - VERTIGO [None]
  - TOOTH INFECTION [None]
  - JAW FRACTURE [None]
  - OSTEONECROSIS OF JAW [None]
  - RHEUMATOID ARTHRITIS [None]
  - PAIN [None]
  - TYPE 2 DIABETES MELLITUS [None]
  - TOOTH DISORDER [None]
  - FRACTURE [None]
  - INSOMNIA [None]
  - SEBORRHOEIC KERATOSIS [None]
  - LEFT VENTRICULAR HYPERTROPHY [None]
  - METABOLIC SYNDROME [None]
  - ANKLE FRACTURE [None]
  - ARTHRALGIA [None]
  - DYSPNOEA [None]
  - BRONCHITIS [None]
  - CHRONIC OBSTRUCTIVE PULMONARY DISEASE [None]
  - TOOTH FRACTURE [None]
  - PERIODONTITIS [None]
  - BODY TINEA [None]
  - DYSPNOEA PAROXYSMAL NOCTURNAL [None]
  - BRUXISM [None]
  - SENSITIVITY OF TEETH [None]
  - INFECTION [None]
  - OEDEMA PERIPHERAL [None]
  - DRUG INEFFECTIVE [None]
  - GINGIVAL INFECTION [None]
